FAERS Safety Report 20564516 (Version 1)
Quarter: 2022Q1

REPORT INFORMATION
  Report Type: Spontaneous
  Country: US (occurrence: None)
  Receive Date: 20220308
  Receipt Date: 20220308
  Transmission Date: 20220423
  Serious: No
  Sender: FDA-Public Use
  Company Number: US-ALVOGEN-2022-ALVOGEN-118271

PATIENT
  Sex: Female

DRUGS (2)
  1. FELBAMATE [Suspect]
     Active Substance: FELBAMATE
     Indication: Seizure
  2. CENOBAMATE [Concomitant]
     Active Substance: CENOBAMATE
     Indication: Seizure

REACTIONS (2)
  - Drug ineffective [Unknown]
  - Condition aggravated [Not Recovered/Not Resolved]
